FAERS Safety Report 9259967 (Version 1)
Quarter: 2013Q2

REPORT INFORMATION
  Report Type: Spontaneous
  Country: GB (occurrence: GB)
  Receive Date: 20130429
  Receipt Date: 20130429
  Transmission Date: 20140414
  Serious: Yes (Other)
  Sender: FDA-Public Use
  Company Number: GB-MICRO LABS LIMITED-BB2013-GB-00239

PATIENT
  Age: 50 Year
  Sex: 0

DRUGS (1)
  1. SIMVASTATIN [Suspect]
     Indication: PROPHYLAXIS
     Route: 048
     Dates: start: 20120820

REACTIONS (1)
  - Nightmare [Unknown]
